FAERS Safety Report 11090590 (Version 1)
Quarter: 2015Q2

REPORT INFORMATION
  Report Type: Spontaneous
  Country: US (occurrence: US)
  Receive Date: 20150505
  Receipt Date: 20150505
  Transmission Date: 20150821
  Serious: No
  Sender: FDA-Public Use
  Company Number: US-009507513-1504USA023018

PATIENT
  Sex: Female

DRUGS (1)
  1. ASMANEX [Suspect]
     Active Substance: MOMETASONE FUROATE
     Dosage: STRENGTH 220 (UNITS NOT PROVIDED), 2 PUFFS DAILY
     Route: 055

REACTIONS (2)
  - Product quality issue [Unknown]
  - No adverse event [Unknown]
